FAERS Safety Report 7637241-6 (Version None)
Quarter: 2011Q3

REPORT INFORMATION
  Report Type: 
  Country: None (occurrence: None)
  Receive Date: 20110726
  Receipt Date: 20110715
  Transmission Date: 20111222
  Serious: Yes (Hospitalization)
  Sender: FDA-Public Use
  Company Number: US-PFIZER INC-2009180198

PATIENT
  Sex: Male
  Weight: 85 kg

DRUGS (10)
  1. SUNITINIB MALATE [Suspect]
     Indication: HEPATIC NEOPLASM MALIGNANT
     Dosage: 37.5 MG (3 CAPSULES OF 12.5 MG), 1X/DAY, IN THE MORNING
     Route: 048
     Dates: start: 20090211, end: 20090309
  2. LISINOPRIL [Concomitant]
     Indication: HYPERTENSION
     Dosage: 40 MG, 1X/DAY
     Route: 048
     Dates: start: 19900101
  3. POTASSIUM CHLORIDE [Concomitant]
     Indication: HYPERTENSION
     Dosage: 10 MEQ, 1X/DAY
     Route: 048
     Dates: start: 19900101
  4. TAMSULOSIN [Concomitant]
     Indication: MICTURITION URGENCY
     Dosage: 0.4 MG, 1X/DAY
     Route: 048
     Dates: start: 20070119
  5. FLUTICASONE [Concomitant]
     Indication: RHINITIS ALLERGIC
     Dosage: 10 MG, 1X/DAY
     Route: 045
     Dates: start: 20071127
  6. IBUPROFEN [Concomitant]
     Indication: ARTHRALGIA
     Dosage: 1-2 TAB, AS NEEDED
     Route: 048
     Dates: start: 20070101
  7. PSEUDOEPHEDRINE [Concomitant]
     Indication: RHINITIS ALLERGIC
     Dosage: 1 TABLET, AS NEEDED
     Route: 048
     Dates: start: 20070101
  8. HYDROCHLOROTHIAZIDE [Concomitant]
     Indication: HYPERTENSION
     Dosage: 25 MG, 1X/DAY
     Route: 048
     Dates: start: 19900101
  9. IMODIUM MULTI-SYMPTOM RELIEF [Concomitant]
     Indication: DIARRHOEA
     Dosage: 1 TABLET, AS NEEDED
     Route: 048
     Dates: start: 20060101
  10. CHONDROITIN/GLUCOSAMINE [Concomitant]
     Indication: MEDICAL DIET
     Dosage: 1 DF, 1X/DAY
     Route: 048

REACTIONS (2)
  - CYSTITIS RADIATION [None]
  - URINARY RETENTION [None]
